FAERS Safety Report 5307211-1 (Version None)
Quarter: 2007Q1

REPORT INFORMATION
  Report Type: 
  Country: None (occurrence: None)
  Receive Date: 20070201
  Receipt Date: 20061205
  Transmission Date: 20070707
  Serious: No
  Sender: FDA-Public Use
  Company Number: 2006PV026348

PATIENT
  Age: 70 Year
  Sex: Female
  Weight: 66.2252 kg

DRUGS (4)
  1. BYETTA [Suspect]
     Indication: GLUCOSE TOLERANCE IMPAIRED
     Dosage: 5 MCG; BID; SC
     Route: 058
     Dates: start: 20061010, end: 20061203
  2. NOVOLOG [Concomitant]
  3. INSULIN [Concomitant]
  4. VITAMINS [Concomitant]

REACTIONS (4)
  - CONSTIPATION [None]
  - DYSACUSIS [None]
  - DYSPEPSIA [None]
  - FATIGUE [None]
